FAERS Safety Report 24983523 (Version 1)
Quarter: 2025Q1

REPORT INFORMATION
  Report Type: Report from Study
  Country: US (occurrence: US)
  Receive Date: 20250219
  Receipt Date: 20250219
  Transmission Date: 20250409
  Serious: Yes (Hospitalization)
  Sender: ROCHE
  Company Number: US-ROCHE-10000205548

PATIENT
  Age: 68 Year
  Sex: Female

DRUGS (1)
  1. ACTEMRA ACTPEN [Suspect]
     Active Substance: TOCILIZUMAB
     Indication: Systemic scleroderma
     Dosage: INJECT THE CONTENTS OF ONE DEVICE UNDER THE SKIN ONCE WEEKLY
     Route: 058

REACTIONS (2)
  - Cardiac failure [Unknown]
  - Cholecystitis infective [Unknown]
